FAERS Safety Report 24369717 (Version 1)
Quarter: 2024Q3

REPORT INFORMATION
  Report Type: Report from Study
  Country: US (occurrence: US)
  Receive Date: 20240927
  Receipt Date: 20240927
  Transmission Date: 20241016
  Serious: No
  Sender: ROCHE
  Company Number: US-ROCHE-3467699

PATIENT
  Age: 50 Year
  Sex: Male
  Weight: 66.68 kg

DRUGS (8)
  1. LUCENTIS [Suspect]
     Active Substance: RANIBIZUMAB
     Indication: Diabetic retinopathy
     Dosage: RECEIVED IN BOTH EYES EVERY 4 TO 8 WEEKS ;ONGOING: YES, DATE OF SERVICE: 09/MAY/2022
     Route: 050
     Dates: start: 202308
  2. LUCENTIS [Suspect]
     Active Substance: RANIBIZUMAB
     Dosage: RECEIVED IN BOTH EYES EVERY 4 TO 8 WEEKS ;ONGOING: NO
     Route: 050
     Dates: start: 202301, end: 2023
  3. LUCENTIS [Suspect]
     Active Substance: RANIBIZUMAB
     Dosage: RECEIVED IN BOTH EYES EVERY 4 TO 8 WEEKS ;ONGOING: NO
     Route: 050
     Dates: start: 202108, end: 202207
  4. LUCENTIS [Suspect]
     Active Substance: RANIBIZUMAB
     Dosage: RECEIVED IN BOTH EYES EVERY 4 TO 8 WEEKS ;ONGOING: NO
     Route: 050
     Dates: start: 202001, end: 20210203
  5. AVASTIN [Suspect]
     Active Substance: BEVACIZUMAB
     Indication: Diabetic retinopathy
     Dosage: RECEIVED EVERY 4 TO 6 WEEKS ;ONGOING: NO
     Route: 050
     Dates: start: 201907, end: 20191016
  6. LANTUS [Concomitant]
     Active Substance: INSULIN GLARGINE
  7. PRAVASTATIN [Concomitant]
     Active Substance: PRAVASTATIN
  8. METFORMIN [Concomitant]
     Active Substance: METFORMIN HYDROCHLORIDE

REACTIONS (5)
  - Off label use [Unknown]
  - Off label use [Unknown]
  - Eye haemorrhage [Not Recovered/Not Resolved]
  - Visual impairment [Unknown]
  - Eye disorder [Not Recovered/Not Resolved]

NARRATIVE: CASE EVENT DATE: 20190701
